FAERS Safety Report 15600737 (Version 2)
Quarter: 2018Q4

REPORT INFORMATION
  Report Type: Spontaneous
  Country: PT (occurrence: PT)
  Receive Date: 20181109
  Receipt Date: 20181114
  Transmission Date: 20190205
  Serious: Yes (Other)
  Sender: FDA-Public Use
  Company Number: PT-AUROBINDO-AUR-APL-2016-11393

PATIENT
  Age: 63 Year
  Sex: Female

DRUGS (3)
  1. ITRACONAZOLE. [Suspect]
     Active Substance: ITRACONAZOLE
     Indication: ASPERGILLUS INFECTION
     Dosage: 200 MG, TWO TIMES A DAY (200 MG, BID)
     Route: 065
  2. VORICONAZOLE. [Suspect]
     Active Substance: VORICONAZOLE
     Indication: PULMONARY MASS
     Dosage: GRADUALLY RE-INTRODUCED
     Route: 065
  3. VORICONAZOLE. [Suspect]
     Active Substance: VORICONAZOLE
     Indication: ASPERGILLUS INFECTION
     Dosage: 200 MILLIGRAM, TWO TIMES A DAY (200 MG, BID)
     Route: 065

REACTIONS (5)
  - Hepatotoxicity [Recovered/Resolved]
  - Aspergillus infection [Recovering/Resolving]
  - Disease progression [Recovering/Resolving]
  - Therapeutic response decreased [Unknown]
  - Hepatic enzyme abnormal [Unknown]
